FAERS Safety Report 10881565 (Version 1)
Quarter: 2015Q1

REPORT INFORMATION
  Report Type: Spontaneous
  Country: US (occurrence: None)
  Receive Date: 20150225
  Receipt Date: 20150225
  Transmission Date: 20150721
  Serious: Yes (Hospitalization)
  Sender: FDA-Public Use
  Company Number: None

PATIENT
  Age: 47 Year
  Sex: Male
  Weight: 99.5 kg

DRUGS (1)
  1. CISPLATIN. [Suspect]
     Active Substance: CISPLATIN
     Dates: end: 20120418

REACTIONS (8)
  - Weight decreased [None]
  - Vomiting [None]
  - Nausea [None]
  - Pain [None]
  - Failure to thrive [None]
  - Dehydration [None]
  - Mucosal inflammation [None]
  - Constipation [None]

NARRATIVE: CASE EVENT DATE: 20120424
